FAERS Safety Report 7109844-9 (Version None)
Quarter: 2010Q4

REPORT INFORMATION
  Report Type: 
  Country: None (occurrence: None)
  Receive Date: 20101116
  Receipt Date: 20101116
  Transmission Date: 20110411
  Serious: No
  Sender: FDA-Public Use
  Company Number: None

PATIENT
  Age: 30 Year
  Sex: Female
  Weight: 63.5036 kg

DRUGS (3)
  1. ACETAMINOPHEN AND HYDROCODONE BITARTRATE [Suspect]
     Indication: SURGERY
     Dosage: 1-2 TABLETS 4 HOURS 047, ORAL
     Route: 048
     Dates: start: 20101023
  2. ACETAMINOPHEN AND HYDROCODONE BITARTRATE [Suspect]
     Indication: SURGERY
     Dosage: 1-2 TABLETS 4 HOURS 047, ORAL
     Route: 048
     Dates: start: 20101030
  3. UNKNOWN [Concomitant]

REACTIONS (2)
  - DRUG INEFFECTIVE [None]
  - PRODUCT SUBSTITUTION ISSUE [None]
